FAERS Safety Report 10472511 (Version 3)
Quarter: 2014Q4

REPORT INFORMATION
  Report Type: Spontaneous
  Country: US (occurrence: US)
  Receive Date: 20140924
  Receipt Date: 20141201
  Transmission Date: 20150528
  Serious: Yes (Death, Hospitalization, Other)
  Sender: FDA-Public Use
  Company Number: US-CELGENE-163-POMAL-14093311

PATIENT
  Age: 76 Year
  Sex: Male

DRUGS (6)
  1. POMALYST [Suspect]
     Active Substance: POMALIDOMIDE
     Route: 048
     Dates: start: 201402
  2. POMALYST [Suspect]
     Active Substance: POMALIDOMIDE
     Indication: NEOPLASM
     Route: 048
     Dates: start: 201312
  3. POMALYST [Suspect]
     Active Substance: POMALIDOMIDE
     Indication: PLASMA CELL MYELOMA
     Route: 048
     Dates: start: 201305
  4. OXYCONTIN [Concomitant]
     Active Substance: OXYCODONE HYDROCHLORIDE
     Indication: PRODUCT USED FOR UNKNOWN INDICATION
     Route: 065
  5. POMALYST [Suspect]
     Active Substance: POMALIDOMIDE
     Route: 048
     Dates: start: 20140815
  6. OXYCODONE [Concomitant]
     Active Substance: OXYCODONE
     Indication: PRODUCT USED FOR UNKNOWN INDICATION
     Route: 065

REACTIONS (5)
  - Confusional state [Unknown]
  - Gallbladder disorder [Not Recovered/Not Resolved]
  - Myocardial infarction [Unknown]
  - Asthenia [Unknown]
  - Death [Fatal]

NARRATIVE: CASE EVENT DATE: 20141101
